FAERS Safety Report 9355155 (Version 1)
Quarter: 2013Q2

REPORT INFORMATION
  Report Type: Spontaneous
  Country: FR (occurrence: FR)
  Receive Date: 20130619
  Receipt Date: 20130619
  Transmission Date: 20140414
  Serious: Yes (Hospitalization)
  Sender: FDA-Public Use
  Company Number: PHHY2013FR061566

PATIENT
  Age: 52 Year
  Sex: Male

DRUGS (6)
  1. NEORAL [Suspect]
     Indication: PSORIASIS
     Dosage: 200 MG, QD
     Route: 048
     Dates: start: 20090602, end: 20120301
  2. SORIATANE [Suspect]
     Indication: PSORIASIS
     Dosage: 35 MG, QD
     Route: 048
     Dates: end: 20120702
  3. METHOTREXATE [Suspect]
     Indication: PSORIASIS
     Dosage: 7.5 MG, EVERY 15 DAYS
     Route: 048
     Dates: end: 20130214
  4. SPECIAFOLDINE [Suspect]
     Indication: PSORIASIS
     Dosage: 5 MG, EVERY 15 DAYS
     Dates: end: 20130217
  5. HUMIRA [Concomitant]
     Indication: PSORIASIS
     Dosage: 40 MG, EVERY 15 DAYS
     Route: 058
     Dates: start: 20120807, end: 20130212
  6. KARDEGIC [Concomitant]
     Dosage: 75 MG, QD
     Route: 048
     Dates: start: 20130131

REACTIONS (1)
  - Tachycardia [Recovered/Resolved]
